FAERS Safety Report 18321747 (Version 4)
Quarter: 2020Q4

REPORT INFORMATION
  Report Type: Spontaneous
  Country: JP (occurrence: JP)
  Receive Date: 20200929
  Receipt Date: 20201120
  Transmission Date: 20210113
  Serious: Yes (Death, Life-Threatening, Other)
  Sender: FDA-Public Use
  Company Number: JP-ALEXION-A202014207

PATIENT
  Age: 82 Year
  Sex: Female
  Weight: 39 kg

DRUGS (5)
  1. NESP [Concomitant]
     Active Substance: DARBEPOETIN ALFA
     Indication: PAROXYSMAL NOCTURNAL HAEMOGLOBINURIA
     Dosage: 240 ?G, Q2W
     Route: 065
  2. MEROPENEM. [Concomitant]
     Active Substance: MEROPENEM
     Indication: CHOLECYSTITIS ACUTE
     Dosage: UNK
     Route: 065
     Dates: start: 20200911
  3. ULTOMIRIS [Suspect]
     Active Substance: RAVULIZUMAB-CWVZ
     Indication: PAROXYSMAL NOCTURNAL HAEMOGLOBINURIA
     Dosage: 2400 MG, SINGLE
     Route: 042
     Dates: start: 20200911, end: 20200911
  4. NEORAL [Concomitant]
     Active Substance: CYCLOSPORINE
     Indication: PAROXYSMAL NOCTURNAL HAEMOGLOBINURIA
     Dosage: 60 MG, BID
     Route: 048
  5. HAPTOGLOBIN [Concomitant]
     Indication: PAROXYSMAL NOCTURNAL HAEMOGLOBINURIA
     Dosage: 4000 UT, DAILY
     Route: 065
     Dates: start: 20200911, end: 20200912

REACTIONS (5)
  - Embolism arterial [Fatal]
  - Atrial fibrillation [Recovered/Resolved]
  - Disseminated intravascular coagulation [Fatal]
  - Gastrointestinal necrosis [Fatal]
  - Multiple organ dysfunction syndrome [Fatal]

NARRATIVE: CASE EVENT DATE: 20200911
